FAERS Safety Report 8576852-0 (Version None)
Quarter: 2012Q3

REPORT INFORMATION
  Report Type: 
  Country: None (occurrence: None)
  Receive Date: 20120807
  Receipt Date: 20120723
  Transmission Date: 20120928
  Serious: Yes (Other)
  Sender: FDA-Public Use
  Company Number: CN-ASTRAZENECA-2012SE54986

PATIENT
  Sex: Female
  Weight: 55 kg

DRUGS (1)
  1. SEROQUEL [Suspect]
     Indication: SCHIZOPHRENIA
     Route: 048
     Dates: start: 20081013, end: 20100518

REACTIONS (3)
  - MALAISE [None]
  - MALNUTRITION [None]
  - HEPATIC FUNCTION ABNORMAL [None]
